FAERS Safety Report 24960949 (Version 1)
Quarter: 2025Q1

REPORT INFORMATION
  Report Type: Spontaneous
  Country: US (occurrence: None)
  Receive Date: 20250211
  Receipt Date: 20250211
  Transmission Date: 20250409
  Serious: Yes (Death)
  Sender: FDA-CTU
  Company Number: None

PATIENT
  Age: 53 Year
  Sex: Male
  Weight: 77.2 kg

DRUGS (2)
  1. IVIGLOB EX [Suspect]
     Active Substance: HUMAN IMMUNOGLOBULIN G
     Indication: Monkeypox
     Route: 040
     Dates: start: 20241218, end: 20241218
  2. TECOVIRIMAT [Suspect]
     Active Substance: TECOVIRIMAT
     Indication: Monkeypox
     Dosage: FREQUENCY : TWICE A DAY;?
     Route: 048
     Dates: start: 20241208, end: 20241229

REACTIONS (7)
  - Nausea [None]
  - Monkeypox [None]
  - Disease progression [None]
  - Immunosuppression [None]
  - HIV infection [None]
  - Refusal of treatment by patient [None]
  - General physical health deterioration [None]

NARRATIVE: CASE EVENT DATE: 20250125
